FAERS Safety Report 20450256 (Version 1)
Quarter: 2022Q1

REPORT INFORMATION
  Report Type: Spontaneous
  Country: DE (occurrence: None)
  Receive Date: 20220209
  Receipt Date: 20220209
  Transmission Date: 20220424
  Serious: Yes (Other)
  Sender: FDA-Public Use
  Company Number: None

PATIENT
  Age: 39 Year
  Sex: Female
  Weight: 120 kg

DRUGS (3)
  1. LEVOTHYROXINE SODIUM [Suspect]
     Active Substance: LEVOTHYROXINE SODIUM
     Indication: Hypothyroidism
     Dosage: DAILY DOSE: 275 UG MICROGRAM(S) EVERY DAY
     Route: 048
  2. FOLIC ACID\VITAMINS [Suspect]
     Active Substance: FOLIC ACID\VITAMINS
     Indication: Prophylaxis of neural tube defect
     Dosage: DAILY DOSE: 0.4 MG MILLIGRAM(S) EVERY DAY
     Route: 048
  3. ABILIFY [Suspect]
     Active Substance: ARIPIPRAZOLE
     Indication: Bipolar disorder
     Dosage: DAILY DOSE: 10 MG MILLIGRAM(S) EVERY DAY
     Route: 048
     Dates: start: 20150605, end: 20160226

REACTIONS (5)
  - Gestational diabetes [Recovered/Resolved]
  - Pre-eclampsia [Unknown]
  - Caesarean section [Unknown]
  - Product use issue [Unknown]
  - Maternal exposure during pregnancy [Recovered/Resolved]
